FAERS Safety Report 8650946 (Version 3)
Quarter: 2013Q4

REPORT INFORMATION
  Report Type: Spontaneous
  Country: US (occurrence: US)
  Receive Date: 20120705
  Receipt Date: 20131118
  Transmission Date: 20140711
  Serious: Yes (Other)
  Sender: FDA-Public Use
  Company Number: US-JNJFOC-20120613626

PATIENT
  Sex: Male
  Weight: 54.43 kg

DRUGS (5)
  1. INTELENCE [Suspect]
     Indication: HIV INFECTION
     Route: 048
     Dates: start: 2007
  2. PREZISTA [Concomitant]
     Indication: HIV INFECTION
     Route: 048
     Dates: start: 2007
  3. ISENTRESS [Concomitant]
     Indication: HIV INFECTION
     Route: 048
     Dates: start: 2007
  4. FUZEON [Concomitant]
     Indication: HIV INFECTION
     Route: 058
     Dates: start: 2007
  5. RETROVIR [Concomitant]
     Indication: HIV INFECTION
     Route: 048
     Dates: start: 2007

REACTIONS (5)
  - Choking [Not Recovered/Not Resolved]
  - Product coating issue [Unknown]
  - Retching [Not Recovered/Not Resolved]
  - Product solubility abnormal [Unknown]
  - Burn oesophageal [Not Recovered/Not Resolved]
